FAERS Safety Report 7989386-9 (Version None)
Quarter: 2011Q4

REPORT INFORMATION
  Report Type: 
  Country: None (occurrence: None)
  Receive Date: 20111219
  Receipt Date: 20111212
  Transmission Date: 20120403
  Serious: Yes (Other)
  Sender: FDA-Public Use
  Company Number: US-BAYER-2011-119624

PATIENT
  Sex: Female

DRUGS (1)
  1. AVELOX [Suspect]
     Dosage: UNK
     Dates: start: 20110701

REACTIONS (7)
  - SWOLLEN TONGUE [None]
  - SKIN DISORDER [None]
  - OEDEMA MOUTH [None]
  - ORAL DISCOMFORT [None]
  - GLOSSODYNIA [None]
  - BURNING SENSATION [None]
  - PARAESTHESIA [None]
